FAERS Safety Report 5697764-6 (Version None)
Quarter: 2008Q2

REPORT INFORMATION
  Report Type: 
  Country: None (occurrence: None)
  Receive Date: 20080404
  Receipt Date: 20080404
  Transmission Date: 20081010
  Serious: Yes (Life-Threatening, Hospitalization)
  Sender: FDA-Public Use
  Company Number: None

PATIENT
  Age: 17 Year
  Sex: Male
  Weight: 68.0396 kg

DRUGS (2)
  1. SINGULAIR [Suspect]
     Indication: ASTHMA
     Dosage: 10 MG DAILY PO
     Route: 048
     Dates: start: 20010101, end: 20080329
  2. SINGULAIR [Suspect]
     Indication: HYPERSENSITIVITY
     Dosage: 10 MG DAILY PO
     Route: 048
     Dates: start: 20010101, end: 20080329

REACTIONS (13)
  - ABNORMAL BEHAVIOUR [None]
  - AGGRESSION [None]
  - ATTENTION DEFICIT/HYPERACTIVITY DISORDER [None]
  - AUTISM [None]
  - BIPOLAR DISORDER [None]
  - BORDERLINE PERSONALITY DISORDER [None]
  - CRYING [None]
  - DEPRESSION [None]
  - EDUCATIONAL PROBLEM [None]
  - INDIFFERENCE [None]
  - OBSESSIVE-COMPULSIVE DISORDER [None]
  - OVERDOSE [None]
  - SLEEP DISORDER [None]
